FAERS Safety Report 9553790 (Version 8)
Quarter: 2014Q1

REPORT INFORMATION
  Report Type: Spontaneous
  Country: CA (occurrence: CA)
  Receive Date: 20130925
  Receipt Date: 20140328
  Transmission Date: 20141002
  Serious: Yes (Hospitalization, Other)
  Sender: FDA-Public Use
  Company Number: CA-ROCHE-1279720

PATIENT
  Age: 13 Year
  Sex: Male

DRUGS (7)
  1. XOLAIR [Suspect]
     Indication: ASTHMA
     Route: 058
     Dates: start: 20130416
  2. XOLAIR [Suspect]
     Route: 065
     Dates: start: 20130609
  3. XOLAIR [Suspect]
     Route: 065
     Dates: start: 20130904
  4. XOLAIR [Suspect]
     Route: 058
     Dates: start: 20131016
  5. XOLAIR [Suspect]
     Route: 058
     Dates: start: 20131030
  6. XOLAIR [Suspect]
     Route: 058
     Dates: start: 20140113
  7. ADVAIR [Concomitant]

REACTIONS (15)
  - Nasopharyngitis [Unknown]
  - Wheezing [Unknown]
  - Chest discomfort [Unknown]
  - Asthma [Unknown]
  - Rhinorrhoea [Unknown]
  - Heart rate increased [Recovered/Resolved]
  - Peak expiratory flow rate increased [Unknown]
  - Dyspnoea [Unknown]
  - Oropharyngeal pain [Unknown]
  - Cough [Unknown]
  - Headache [Unknown]
  - Drug ineffective [Unknown]
  - Weight increased [Unknown]
  - Osteonecrosis [Unknown]
  - Viral infection [Unknown]
